FAERS Safety Report 16505492 (Version 4)
Quarter: 2020Q1

REPORT INFORMATION
  Report Type: Report from Study
  Country: US (occurrence: US)
  Receive Date: 20190701
  Receipt Date: 20200207
  Transmission Date: 20200409
  Serious: Yes (Hospitalization)
  Sender: FDA-Public Use
  Company Number: US-SA-2019SA173684

PATIENT
  Age: 70 Year
  Sex: Female
  Weight: 66 kg

DRUGS (2)
  1. DUPILUMAB [Suspect]
     Active Substance: DUPILUMAB
     Dosage: 300 MG, QOW
     Route: 058
     Dates: start: 20190501
  2. DUPILUMAB [Suspect]
     Active Substance: DUPILUMAB
     Indication: DERMATITIS ATOPIC
     Dosage: 600 MG, 1X
     Route: 058

REACTIONS (6)
  - Eye swelling [Recovered/Resolved]
  - Hospitalisation [Not Recovered/Not Resolved]
  - Swelling [Unknown]
  - Eye pruritus [Recovered/Resolved]
  - Pruritus [Unknown]
  - Dry eye [Recovered/Resolved]

NARRATIVE: CASE EVENT DATE: 20190613
